FAERS Safety Report 15674683 (Version 3)
Quarter: 2018Q4

REPORT INFORMATION
  Report Type: Spontaneous
  Country: DE (occurrence: DE)
  Receive Date: 20181130
  Receipt Date: 20181218
  Transmission Date: 20190205
  Serious: Yes (Hospitalization)
  Sender: FDA-Public Use
  Company Number: DE-TEVA-2018-DE-978999

PATIENT
  Age: 72 Year
  Sex: Female
  Weight: 66 kg

DRUGS (1)
  1. INDOMET-RATIOPHARM 75 MG RETARDKAPSELN [Suspect]
     Active Substance: INDOMETHACIN
     Indication: CLUSTER HEADACHE
     Dosage: 75 MILLIGRAM DAILY; TOOK ONE CAPSULE AFTER BREAKFAST AT 09:30 CLOCK
     Route: 048
     Dates: start: 20181109

REACTIONS (9)
  - Dyspnoea [Recovered/Resolved]
  - Anxiety [Recovered/Resolved]
  - Illusion [Recovered/Resolved]
  - Circulatory collapse [Recovered/Resolved]
  - Blood pressure increased [Recovered/Resolved]
  - Nausea [Recovered/Resolved]
  - Palpitations [Recovered/Resolved]
  - Dizziness [Recovered/Resolved]
  - Tremor [Recovered/Resolved]

NARRATIVE: CASE EVENT DATE: 20181109
